FAERS Safety Report 25669781 (Version 3)
Quarter: 2025Q4

REPORT INFORMATION
  Report Type: Spontaneous
  Country: US (occurrence: US)
  Receive Date: 20250812
  Receipt Date: 20251121
  Transmission Date: 20260117
  Serious: No
  Sender: BRISTOL-MYERS SQUIBB COMPANY
  Company Number: US-BRISTOL-MYERS SQUIBB COMPANY-2025-111868

PATIENT
  Age: 73 Year
  Sex: Male

DRUGS (1)
  1. REVLIMID [Suspect]
     Active Substance: LENALIDOMIDE
     Indication: Plasma cell myeloma in remission
     Route: 048

REACTIONS (9)
  - Treatment noncompliance [Unknown]
  - Oedema [Unknown]
  - Feeling abnormal [Unknown]
  - Poor quality sleep [Unknown]
  - Peripheral swelling [Unknown]
  - Malaise [Unknown]
  - Fatigue [Unknown]
  - Swelling [Unknown]
  - Lethargy [Unknown]
